FAERS Safety Report 6438406-1 (Version None)
Quarter: 2009Q4

REPORT INFORMATION
  Report Type: 
  Country: None (occurrence: None)
  Receive Date: 20091109
  Receipt Date: 20091105
  Transmission Date: 20100525
  Serious: Yes (Other)
  Sender: FDA-Public Use
  Company Number: GB-EBEWE-1692EPIRUBFLUORO09

PATIENT
  Age: 61 Year
  Sex: Female

DRUGS (5)
  1. FLUOROURACIL [Suspect]
     Indication: BREAST CANCER
     Dates: start: 20050715, end: 20051015
  2. HERCEPTIN [Suspect]
     Indication: BREAST CANCER
     Dosage: 450 MG, IV
     Route: 042
     Dates: start: 20060515, end: 20070515
  3. CYCLOPHOSPHAMIDE [Suspect]
     Dates: start: 20050715, end: 20051015
  4. EPIRUBICIN [Suspect]
     Dates: start: 20060515, end: 20070515
  5. TAXOTERE [Concomitant]

REACTIONS (2)
  - ACUTE MYELOID LEUKAEMIA [None]
  - NEUTROPENIC SEPSIS [None]
